FAERS Safety Report 23530172 (Version 1)
Quarter: 2024Q1

REPORT INFORMATION
  Report Type: Spontaneous
  Country: GB (occurrence: GB)
  Receive Date: 20240216
  Receipt Date: 20240216
  Transmission Date: 20240410
  Serious: Yes (Hospitalization, Other)
  Sender: FDA-Public Use
  Company Number: GB-MHRA-WEBRADR-202402031956139460-VFTJY

PATIENT
  Age: 57 Year
  Sex: Male

DRUGS (1)
  1. BISOPROLOL [Suspect]
     Active Substance: BISOPROLOL\BISOPROLOL FUMARATE
     Indication: Wolff-Parkinson-White syndrome
     Dosage: UNK
     Route: 048
     Dates: start: 20240203

REACTIONS (1)
  - Erectile dysfunction [Not Recovered/Not Resolved]
